FAERS Safety Report 16895799 (Version 4)
Quarter: 2020Q2

REPORT INFORMATION
  Report Type: Spontaneous
  Country: DE (occurrence: DE)
  Receive Date: 20191008
  Receipt Date: 20200521
  Transmission Date: 20200713
  Serious: Yes (Disabling, Other)
  Sender: FDA-Public Use
  Company Number: DE-MYLANLABS-2019M1092976

PATIENT
  Sex: Male
  Weight: 80 kg

DRUGS (65)
  1. VALSARTAN DURA 160 MG FILMTABLETTEN [Suspect]
     Active Substance: VALSARTAN
     Dosage: 320 MILLIGRAM, (30-OCT/02-NOV-2018)
     Dates: start: 2018
  2. VALSARTAN DURA 160 MG FILMTABLETTEN [Suspect]
     Active Substance: VALSARTAN
     Dosage: 320 MILLIGRAM
     Dates: start: 20160407
  3. VALSARTAN DURA 160 MG FILMTABLETTEN [Suspect]
     Active Substance: VALSARTAN
     Dosage: 320 MILLIGRAM
     Dates: start: 20170522
  4. AMLODIPIN                          /00972401/ [Concomitant]
     Active Substance: AMLODIPINE BESYLATE
     Dosage: 10 MILLIGRAM, BID
     Dates: start: 20160920
  5. AMLODIPIN                          /00972401/ [Concomitant]
     Active Substance: AMLODIPINE BESYLATE
     Dosage: 10 MILLIGRAM, BID
     Dates: start: 20170529
  6. AMLODIPIN                          /00972401/ [Concomitant]
     Active Substance: AMLODIPINE BESYLATE
     Dosage: 10 MILLIGRAM, BID
     Dates: start: 20171102
  7. AMLODIPIN                          /00972401/ [Concomitant]
     Active Substance: AMLODIPINE BESYLATE
     Dosage: 10 MILLIGRAM, BID
     Dates: start: 20180213
  8. PIPAMPERONE [Concomitant]
     Active Substance: PIPAMPERONE
     Dosage: 40 MILLIGRAM, QD (09/10-NOV-2016)
     Dates: start: 201611
  9. PIPAMPERONE [Concomitant]
     Active Substance: PIPAMPERONE
     Dosage: 40 MILLIGRAM, QD
     Dates: start: 20170322
  10. PIPAMPERONE [Concomitant]
     Active Substance: PIPAMPERONE
     Dosage: 40 MILLIGRAM, QD
     Dates: start: 20170911
  11. NOVAMINSULFON LICHTENSTEIN [Concomitant]
     Active Substance: METAMIZOLE SODIUM
     Dosage: UNK
     Dates: start: 20160907
  12. SERTRALIN AUROBINDO [Concomitant]
     Active Substance: SERTRALINE HYDROCHLORIDE
     Dosage: UNK
     Dates: start: 20180306
  13. VALSARTAN DURA 160 MG FILMTABLETTEN [Suspect]
     Active Substance: VALSARTAN
     Dosage: 320 MILLIGRAM
     Dates: start: 20171102
  14. AMLODIPIN                          /00972401/ [Concomitant]
     Active Substance: AMLODIPINE BESYLATE
     Dosage: 10 MILLIGRAM, BID
     Dates: start: 20170406
  15. AMLODIPIN                          /00972401/ [Concomitant]
     Active Substance: AMLODIPINE BESYLATE
     Dosage: 10 MILLIGRAM, BID
     Dates: start: 20180405
  16. AMLODIPIN                          /00972401/ [Concomitant]
     Active Substance: AMLODIPINE BESYLATE
     Dosage: 10 MILLIGRAM, BID (24/30-MAY-2018)
     Dates: start: 201805
  17. AMLODIPIN                          /00972401/ [Concomitant]
     Active Substance: AMLODIPINE BESYLATE
     Dosage: 10 MILLIGRAM, BID (05/06-JUL-2018)
     Dates: start: 201807
  18. AMLODIPIN                          /00972401/ [Concomitant]
     Active Substance: AMLODIPINE BESYLATE
     Dosage: 10 MILLIGRAM, BID (04/05-SEP-2018)
     Dates: start: 201809
  19. AMLODIPIN                          /00972401/ [Concomitant]
     Active Substance: AMLODIPINE BESYLATE
     Dosage: 10 MILLIGRAM, BID (04/11-JUL-2019)
     Dates: start: 201907
  20. AMLODIPIN                          /00972401/ [Concomitant]
     Active Substance: AMLODIPINE BESYLATE
     Dosage: 10 MILLIGRAM, BID (21/25-JAN-2020)
     Dates: start: 202001
  21. PIPAMPERONE [Concomitant]
     Active Substance: PIPAMPERONE
     Dosage: 40 MILLIGRAM, QD ( 11/30-MAR-2019)
     Dates: start: 201903
  22. SERTRALINE [Concomitant]
     Active Substance: SERTRALINE HYDROCHLORIDE
     Indication: PANIC DISORDER
  23. TELMISARTAN HEUMANN [Concomitant]
     Active Substance: TELMISARTAN
     Indication: ESSENTIAL HYPERTENSION
     Dosage: 40 MILLIGRAM
  24. SERTRALIN AUROBINDO [Concomitant]
     Active Substance: SERTRALINE HYDROCHLORIDE
     Dosage: UNK (17-SEP/01-OCT-2018)
     Dates: start: 2018
  25. SERTRALIN ACCORD [Concomitant]
     Active Substance: SERTRALINE HYDROCHLORIDE
     Dosage: UNK
     Dates: start: 20190805
  26. VALSARTAN DURA 160 MG FILMTABLETTEN [Suspect]
     Active Substance: VALSARTAN
     Dosage: 320 MILLIGRAM
     Dates: start: 20180213
  27. AMLODIPIN                          /00972401/ [Concomitant]
     Active Substance: AMLODIPINE BESYLATE
     Indication: ESSENTIAL HYPERTENSION
     Dosage: 5 MILLIGRAM, BID (AMLODIPIN BESIL DEXCEL)
  28. AMLODIPIN                          /00972401/ [Concomitant]
     Active Substance: AMLODIPINE BESYLATE
     Dosage: 10 MILLIGRAM, BID
     Dates: start: 20160913
  29. AMLODIPIN                          /00972401/ [Concomitant]
     Active Substance: AMLODIPINE BESYLATE
     Dosage: 10 MILLIGRAM, BID (26/30-APR-2019)
     Dates: start: 201904
  30. AMLODIPIN                          /00972401/ [Concomitant]
     Active Substance: AMLODIPINE BESYLATE
     Dosage: 10 MILLIGRAM, BID (19/29-NOV-2019)
     Dates: start: 201911
  31. PIPAMPERONE [Concomitant]
     Active Substance: PIPAMPERONE
     Dosage: 40 MILLIGRAM, QD (11/13-DEC-2017 )
     Dates: start: 201712
  32. SERTRALINE [Concomitant]
     Active Substance: SERTRALINE HYDROCHLORIDE
     Indication: DEPRESSION
     Dosage: 50 MILLIGRAM, QD
  33. VALSARTAN DURA 160 MG FILMTABLETTEN [Suspect]
     Active Substance: VALSARTAN
     Dosage: 320 MILLIGRAM
     Dates: start: 20171205
  34. AMLODIPIN                          /00972401/ [Concomitant]
     Active Substance: AMLODIPINE BESYLATE
     Dosage: 10 MILLIGRAM, BID
     Dates: start: 20160601
  35. AMLODIPIN                          /00972401/ [Concomitant]
     Active Substance: AMLODIPINE BESYLATE
     Dosage: 10 MILLIGRAM, BID
     Dates: start: 20171205
  36. SERTRALIN AUROBINDO [Concomitant]
     Active Substance: SERTRALINE HYDROCHLORIDE
     Dosage: UNK
     Dates: start: 20180131
  37. SERTRALIN AUROBINDO [Concomitant]
     Active Substance: SERTRALINE HYDROCHLORIDE
     Dosage: UNK
     Dates: start: 20181211
  38. AMLODIPIN                          /00972401/ [Concomitant]
     Active Substance: AMLODIPINE BESYLATE
     Dosage: 10 MILLIGRAM, BID
     Dates: start: 20160407
  39. AMLODIPIN                          /00972401/ [Concomitant]
     Active Substance: AMLODIPINE BESYLATE
     Dosage: 10 MILLIGRAM, BID
     Dates: start: 20161207
  40. AMLODIPIN                          /00972401/ [Concomitant]
     Active Substance: AMLODIPINE BESYLATE
     Dosage: 10 MILLIGRAM, BID
     Dates: start: 20170522
  41. AMLODIPIN                          /00972401/ [Concomitant]
     Active Substance: AMLODIPINE BESYLATE
     Dosage: 10 MILLIGRAM, BID
     Dates: start: 20170216
  42. AMLODIPIN                          /00972401/ [Concomitant]
     Active Substance: AMLODIPINE BESYLATE
     Dosage: 10 MILLIGRAM, BID
     Dates: start: 20170907
  43. AMLODIPIN                          /00972401/ [Concomitant]
     Active Substance: AMLODIPINE BESYLATE
     Dosage: 10 MILLIGRAM, BID (26/28-FEB-2019)
     Dates: start: 201902
  44. PIPAMPERONE [Concomitant]
     Active Substance: PIPAMPERONE
     Dosage: 40 MILLIGRAM, QD (PIPAMPERONE 1A PHARMA)
     Dates: start: 20160810
  45. SERTRALINE [Concomitant]
     Active Substance: SERTRALINE HYDROCHLORIDE
     Indication: ANXIETY
  46. DEXA GENTAMICIN                    /01106201/ [Concomitant]
     Dosage: UNK
     Dates: start: 20161104
  47. ORTOTON                            /00047901/ [Concomitant]
     Active Substance: METHOCARBAMOL
     Dosage: UNK
     Dates: start: 20161019
  48. SERTRALIN AUROBINDO [Concomitant]
     Active Substance: SERTRALINE HYDROCHLORIDE
     Dosage: UNK (04/07-JUN-2018 )
     Dates: start: 201806
  49. SERTRALIN AUROBINDO [Concomitant]
     Active Substance: SERTRALINE HYDROCHLORIDE
     Dosage: UNK
     Dates: start: 20190104
  50. VALSARTAN DURA 160 MG FILMTABLETTEN [Suspect]
     Active Substance: VALSARTAN
     Dosage: 320 MILLIGRAM (04/05-SEP-2018)
     Dates: start: 201809
  51. AMLODIPIN                          /00972401/ [Concomitant]
     Active Substance: AMLODIPINE BESYLATE
     Dosage: 10 MILLIGRAM, BID
     Dates: start: 20161108
  52. AMLODIPIN                          /00972401/ [Concomitant]
     Active Substance: AMLODIPINE BESYLATE
     Dosage: 10 MILLIGRAM, BID
     Dates: start: 20181213
  53. PIPAMPERONE [Concomitant]
     Active Substance: PIPAMPERONE
     Dosage: 40 MILLIGRAM, QD
     Dates: start: 20170529
  54. VALSARTAN DURA 160 MG FILMTABLETTEN [Suspect]
     Active Substance: VALSARTAN
     Indication: PRODUCT USED FOR UNKNOWN INDICATION
     Dosage: 160 MILLIGRAM, BID
     Dates: start: 2016, end: 2018
  55. AMLODIPIN                          /00972401/ [Concomitant]
     Active Substance: AMLODIPINE BESYLATE
     Dosage: 10 MILLIGRAM, BID
     Dates: start: 20160629
  56. AMLODIPIN                          /00972401/ [Concomitant]
     Active Substance: AMLODIPINE BESYLATE
     Dosage: 10 MILLIGRAM, BID
     Dates: start: 20170720
  57. AMLODIPIN                          /00972401/ [Concomitant]
     Active Substance: AMLODIPINE BESYLATE
     Dosage: 10 MILLIGRAM, BID (30-OCT/02-NOV-2018)
     Dates: start: 2018
  58. PIPAMPERONE [Concomitant]
     Active Substance: PIPAMPERONE
     Indication: NEUROLEPTIC MALIGNANT SYNDROME
     Dosage: 40 MILLIGRAM, QD (28-JUN/01-JUL-2016)
     Dates: start: 2016
  59. DEXA GENTAMICIN                    /01106201/ [Concomitant]
     Dosage: UNK
     Dates: start: 20170424
  60. SPASMEX                            /00376202/ [Concomitant]
     Active Substance: TROSPIUM CHLORIDE
     Dosage: UNK
     Dates: start: 20170724
  61. SERTRALIN AUROBINDO [Concomitant]
     Active Substance: SERTRALINE HYDROCHLORIDE
     Dosage: UNK (11/30-MAR-2019 )
     Dates: start: 201903
  62. TELMISARTAN ABZ [Concomitant]
     Active Substance: TELMISARTAN
     Dosage: UNK
  63. VALSARTAN DURA 160 MG FILMTABLETTEN [Suspect]
     Active Substance: VALSARTAN
     Dosage: 320 MILLIGRAM
     Dates: start: 20161207
  64. AMLODIPIN                          /00972401/ [Concomitant]
     Active Substance: AMLODIPINE BESYLATE
     Dosage: 10 MILLIGRAM, BID (30-SEP/02-OCT-2019)
     Dates: start: 2019
  65. PIPAMPERONE [Concomitant]
     Active Substance: PIPAMPERONE
     Dosage: 40 MILLIGRAM, QD (05/26-AUG-2019)
     Dates: start: 201908

REACTIONS (6)
  - Condition aggravated [Unknown]
  - Impaired quality of life [Unknown]
  - Recalled product administered [Unknown]
  - Panic attack [Unknown]
  - Mental impairment [Unknown]
  - Anxiety [Unknown]

NARRATIVE: CASE EVENT DATE: 2018
